FAERS Safety Report 5526892-0 (Version None)
Quarter: 2007Q4

REPORT INFORMATION
  Report Type: 
  Country: None (occurrence: None)
  Receive Date: 20071127
  Receipt Date: 20071116
  Transmission Date: 20080405
  Serious: Yes (Other)
  Sender: FDA-Public Use
  Company Number: US-PFIZER INC-2007082408

PATIENT
  Sex: Female

DRUGS (1)
  1. EXUBERA [Suspect]
     Indication: DIABETES MELLITUS
     Route: 055
     Dates: start: 20070801, end: 20070101

REACTIONS (2)
  - DIZZINESS [None]
  - HYPERTENSION [None]
